FAERS Safety Report 4336675-5 (Version None)
Quarter: 2004Q2

REPORT INFORMATION
  Report Type: 
  Country: None (occurrence: None)
  Receive Date: 20040412
  Receipt Date: 20040331
  Transmission Date: 20050107
  Serious: Yes (Life-Threatening)
  Sender: FDA-Public Use
  Company Number: NL-GLAXOSMITHKLINE-B0328656A

PATIENT
  Age: 63 Year
  Sex: Male

DRUGS (15)
  1. PAROXETINE HCL [Suspect]
     Dosage: 20MG PER DAY
     Route: 048
     Dates: start: 20040209, end: 20040210
  2. FOSAMAX [Concomitant]
     Route: 048
  3. SYMBICORT [Concomitant]
     Route: 055
  4. OXAZEPAM [Concomitant]
     Dosage: 60MG PER DAY
     Route: 048
  5. MORPHINE SULFATE [Concomitant]
     Dosage: 60MG PER DAY
     Route: 048
  6. MOVICOLON [Concomitant]
     Dates: start: 20040126, end: 20040209
  7. PRIMPERAN INJ [Concomitant]
     Dosage: 3TAB PER DAY
     Dates: start: 20040108
  8. STRUMAZOL [Concomitant]
     Dosage: 30MG PER DAY
     Route: 048
     Dates: start: 20030815
  9. ACETYLCYSTEINE [Concomitant]
     Dosage: 1TAB TWICE PER DAY
  10. SINTROM MITIS [Concomitant]
     Route: 048
  11. PARIET [Concomitant]
     Dosage: 20MG PER DAY
     Route: 048
     Dates: start: 20030304
  12. AMIODARONE HCL [Concomitant]
     Dosage: 200MG PER DAY
     Route: 048
  13. PREDNISOLONE [Concomitant]
     Dosage: 5MG PER DAY
     Route: 048
  14. LERDIP [Concomitant]
     Dosage: 10MG PER DAY
     Route: 048
     Dates: start: 20030701
  15. X-PRAEP [Concomitant]
     Dosage: 20ML PER DAY

REACTIONS (1)
  - SUICIDAL IDEATION [None]
